FAERS Safety Report 8426200-1 (Version None)
Quarter: 2012Q2

REPORT INFORMATION
  Report Type: 
  Country: None (occurrence: None)
  Receive Date: 20120611
  Receipt Date: 20111121
  Transmission Date: 20120825
  Serious: No
  Sender: FDA-Public Use
  Company Number: US-MYLANLABS-2011S1024084

PATIENT
  Age: 68 Year
  Sex: Female

DRUGS (4)
  1. NYSTATIN [Concomitant]
  2. CYCLOBENZAPRINE HCL [Suspect]
     Indication: MUSCLE SPASMS
     Route: 048
     Dates: start: 20111018, end: 20111001
  3. CYCLOBENZAPRINE HCL [Suspect]
     Route: 048
     Dates: start: 20111113, end: 20111119
  4. ENALAPRIL MALEATE [Concomitant]

REACTIONS (4)
  - BALANCE DISORDER [None]
  - ABDOMINAL DISTENSION [None]
  - REACTION TO DRUG EXCIPIENTS [None]
  - VISION BLURRED [None]
